FAERS Safety Report 5391978-0 (Version None)
Quarter: 2007Q3

REPORT INFORMATION
  Report Type: 
  Country: None (occurrence: None)
  Receive Date: 20070717
  Receipt Date: 20070717
  Transmission Date: 20080115
  Serious: No
  Sender: FDA-Public Use
  Company Number: None

PATIENT
  Sex: Female
  Weight: 28.1 kg

DRUGS (1)
  1. VERAPAMIL [Suspect]
     Indication: VENTRICULAR TACHYCARDIA
     Dosage: 120 MG DAILY PO
     Route: 048
     Dates: start: 20070109, end: 20070116

REACTIONS (2)
  - ORAL DISCOMFORT [None]
  - THROAT IRRITATION [None]
